FAERS Safety Report 6668468-8 (Version None)
Quarter: 2010Q2

REPORT INFORMATION
  Report Type: 
  Country: None (occurrence: None)
  Receive Date: 20100406
  Receipt Date: 20100330
  Transmission Date: 20101027
  Serious: Yes (Other)
  Sender: FDA-Public Use
  Company Number: PHHO2010CH03508

PATIENT

DRUGS (3)
  1. CGS 20267 T30748+TAB [Suspect]
     Indication: BREAST CANCER
     Dosage: 2.5 MG, QD
     Route: 048
     Dates: start: 20080820, end: 20100216
  2. RADIATION THERAPY [Suspect]
  3. CELEBREX [Concomitant]

REACTIONS (2)
  - ANGIOSARCOMA [None]
  - MASTECTOMY [None]
